FAERS Safety Report 5406945-8 (Version None)
Quarter: 2007Q3

REPORT INFORMATION
  Report Type: 
  Country: None (occurrence: None)
  Receive Date: 20070802
  Receipt Date: 20070718
  Transmission Date: 20080115
  Serious: Yes (Life-Threatening, Hospitalization)
  Sender: FDA-Public Use
  Company Number: 159015ISR

PATIENT
  Age: 62 Year
  Sex: Male

DRUGS (5)
  1. DIAZEPAM [Suspect]
     Indication: DRUG DEPENDENCE
     Dosage: 7 MG (7 MG, 1 IN 1 D)
  2. TEMAZEPAM [Suspect]
     Indication: ANXIETY
  3. ZOPICLONE [Suspect]
     Indication: DRUG DEPENDENCE
     Dosage: 7.5 MG (7.5 MG, 1 IN 1 D)
  4. ALPRAZOLAM [Suspect]
  5. LORAZEPAM [Suspect]
     Indication: ANXIETY
     Dosage: 1.5 MG (1.5 MG, 1 IN 1 D); 2 MG (1 MG, 2 IN 1 D)

REACTIONS (6)
  - ANXIETY [None]
  - DRUG DEPENDENCE [None]
  - DRUG WITHDRAWAL SYNDROME [None]
  - SELF INJURIOUS BEHAVIOUR [None]
  - SOMATIC DELUSION [None]
  - SUICIDE ATTEMPT [None]
